FAERS Safety Report 13348107 (Version 2)
Quarter: 2017Q1

REPORT INFORMATION
  Report Type: Report from Study
  Country: None (occurrence: ZA)
  Receive Date: 20170318
  Receipt Date: 20170321
  Transmission Date: 20170428
  Serious: Yes (Hospitalization, Other)
  Sender: FDA-Public Use
  Company Number: ZA-ABBVIE-17K-143-1907841-00

PATIENT
  Age: 20 Year
  Sex: Female
  Weight: 40 kg

DRUGS (6)
  1. ZYTOMIL [Concomitant]
     Indication: BIPOLAR DISORDER
  2. HUMIRA [Suspect]
     Active Substance: ADALIMUMAB
     Dosage: WEEK 2
     Route: 058
  3. HUMIRA [Suspect]
     Active Substance: ADALIMUMAB
     Indication: PRODUCT USED FOR UNKNOWN INDICATION
     Dosage: WEEK 0
     Route: 058
  4. SEROQUEL [Concomitant]
     Active Substance: QUETIAPINE FUMARATE
     Indication: BIPOLAR DISORDER
     Dosage: AS NEEDED BUT TAKEN MOST NIGHTS
  5. LITHIUM. [Concomitant]
     Active Substance: LITHIUM
     Indication: BIPOLAR DISORDER
  6. CONCERTA [Concomitant]
     Active Substance: METHYLPHENIDATE HYDROCHLORIDE
     Indication: BIPOLAR DISORDER
     Dosage: TAKEN MOST DAYS

REACTIONS (12)
  - Inappropriate schedule of drug administration [Unknown]
  - Lung disorder [Recovered/Resolved]
  - Fracture nonunion [Unknown]
  - Liver injury [Recovered/Resolved]
  - Osteomyelitis bacterial [Unknown]
  - Abdominal pain upper [Unknown]
  - Device breakage [Unknown]
  - Face injury [Unknown]
  - Femur fracture [Not Recovered/Not Resolved]
  - Road traffic accident [Recovered/Resolved]
  - Suicide attempt [Unknown]
  - Staphylococcal infection [Unknown]

NARRATIVE: CASE EVENT DATE: 2016
